FAERS Safety Report 9346524 (Version 2)
Quarter: 2013Q2

REPORT INFORMATION
  Report Type: Report from Study
  Country: BE (occurrence: BE)
  Receive Date: 20130613
  Receipt Date: 20130628
  Transmission Date: 20140414
  Serious: Yes (Death, Hospitalization, Other)
  Sender: FDA-Public Use
  Company Number: BE-ABBOTT-13P-013-1102259-00

PATIENT
  Age: 84 Year
  Sex: Female

DRUGS (14)
  1. HUMIRA [Suspect]
     Indication: RHEUMATOID ARTHRITIS
     Route: 058
     Dates: start: 20070723, end: 20121113
  2. EXELON [Suspect]
     Indication: DEMENTIA ALZHEIMER^S TYPE
     Dates: end: 201204
  3. BURINEX [Suspect]
     Indication: PRODUCT USED FOR UNKNOWN INDICATION
     Dosage: MONDAY, WEDNESDAY, FRIDAY AND SUNDAY
  4. MAREVAN [Concomitant]
     Indication: PRODUCT USED FOR UNKNOWN INDICATION
     Dosage: ON MONDAY, WEDNESDAY, FRIDAY AND SUNDAY
  5. NITROGLYCERINE [Concomitant]
     Indication: PRODUCT USED FOR UNKNOWN INDICATION
     Dosage: PUT ON AT 8AM AND TAKE OFF AT 8PM
  6. ATROVENT [Concomitant]
     Indication: PRODUCT USED FOR UNKNOWN INDICATION
  7. TRADONAL [Concomitant]
     Indication: PRODUCT USED FOR UNKNOWN INDICATION
     Dosage: AT 8AM, 12PM AND 6PM
  8. BURINEX [Concomitant]
     Indication: PRODUCT USED FOR UNKNOWN INDICATION
     Dosage: ON TUESDAY, THURSDAY, SATURDAY
  9. TARDYFERON [Concomitant]
     Indication: PRODUCT USED FOR UNKNOWN INDICATION
     Dosage: AT 8AM
  10. SERETIDE [Concomitant]
     Indication: PRODUCT USED FOR UNKNOWN INDICATION
     Dosage: 25/125: 2 TIMES 2 IN 1 DAY AT 8AM AND 8PM
  11. FORLAX [Concomitant]
     Indication: PRODUCT USED FOR UNKNOWN INDICATION
     Dosage: AT 8AM AND 6PM
  12. DUOVENT [Concomitant]
     Indication: PRODUCT USED FOR UNKNOWN INDICATION
     Dosage: 2 PUFFS AT 8AM AND 2 PUFFS AT 8PM
  13. ARANESP [Concomitant]
     Indication: PRODUCT USED FOR UNKNOWN INDICATION
     Dosage: 100MCG/0.5ML
     Route: 058
  14. URFADYN PL [Concomitant]
     Indication: PRODUCT USED FOR UNKNOWN INDICATION
     Dosage: AT 8AM, 12PM AND 6PM

REACTIONS (30)
  - Pleurisy [Fatal]
  - Hyperchloraemia [Unknown]
  - Thrombocytopenia [Unknown]
  - Pulmonary mass [Unknown]
  - Lung neoplasm [Unknown]
  - Pulmonary tuberculosis [Unknown]
  - Renal disorder [Unknown]
  - Ovarian cyst [Unknown]
  - Faecaloma [Unknown]
  - Cardiomegaly [Unknown]
  - Arteriosclerosis [Unknown]
  - Mucosal atrophy [Unknown]
  - Arrhythmia [Unknown]
  - Pneumonia klebsiella [Unknown]
  - Gout [Unknown]
  - Hospitalisation [Unknown]
  - Bradycardia [Unknown]
  - Myocardial infarction [Unknown]
  - Pulmonary oedema [Unknown]
  - Electrocardiogram repolarisation abnormality [Unknown]
  - Interstitial lung disease [Unknown]
  - General physical health deterioration [Unknown]
  - Vomiting [Unknown]
  - Melaena [Unknown]
  - Decreased appetite [Unknown]
  - Asthenia [Unknown]
  - Weight decreased [Unknown]
  - Diarrhoea [Unknown]
  - Clostridium difficile infection [Unknown]
  - Hypernatraemia [Unknown]
